FAERS Safety Report 8148920-9 (Version None)
Quarter: 2012Q1

REPORT INFORMATION
  Report Type: 
  Country: None (occurrence: None)
  Receive Date: 20120218
  Receipt Date: 20110718
  Transmission Date: 20120608
  Serious: No
  Sender: FDA-Public Use
  Company Number: US-ALLERGAN-1109613US

PATIENT
  Age: 55 Year
  Sex: Female

DRUGS (5)
  1. BOTOX COSMETIC [Suspect]
     Indication: TEMPOROMANDIBULAR JOINT SYNDROME
  2. BOTOX COSMETIC [Suspect]
     Indication: SKIN WRINKLING
     Dosage: UNK
     Route: 030
     Dates: start: 20110501, end: 20110501
  3. UNSPECIFIED THYROID [Concomitant]
     Indication: THYROID DISORDER
     Dosage: UNK
  4. UNSPECIFIED ESTROGEN [Concomitant]
     Indication: HORMONE THERAPY
     Dosage: UNK
  5. BOTOX COSMETIC [Suspect]
     Indication: HEADACHE

REACTIONS (5)
  - MUSCLE SPASMS [None]
  - NECK INJURY [None]
  - MUSCULAR WEAKNESS [None]
  - OROPHARYNGEAL SPASM [None]
  - BACK INJURY [None]
